FAERS Safety Report 4277748-5 (Version None)
Quarter: 2004Q1

REPORT INFORMATION
  Report Type: 
  Country: None (occurrence: None)
  Receive Date: 20040121
  Receipt Date: 20040105
  Transmission Date: 20041129
  Serious: Yes (Hospitalization)
  Sender: FDA-Public Use
  Company Number: 2003188253NL

PATIENT
  Age: 81 Year
  Sex: Female

DRUGS (4)
  1. CELEBREX [Suspect]
     Dosage: 200 MG, BID,
     Dates: start: 20030626
  2. CARBOPLATIN [Suspect]
     Dosage: 470 MG
  3. DOCETAXEL (DOCETAXEL) [Suspect]
     Dosage: 135 MG, IV
     Route: 042
  4. PANTOPRAZOLE [Concomitant]

REACTIONS (2)
  - MALAISE [None]
  - SUBILEUS [None]
